FAERS Safety Report 5252284-8 (Version None)
Quarter: 2007Q1

REPORT INFORMATION
  Report Type: 
  Country: None (occurrence: None)
  Receive Date: 20070227
  Receipt Date: 20070219
  Transmission Date: 20070707
  Serious: Yes (Hospitalization, Other)
  Sender: FDA-Public Use
  Company Number: 153110ISR

PATIENT
  Age: 40 Year
  Sex: Female

DRUGS (3)
  1. PREDNISOLONE [Suspect]
  2. METHOTREXATE [Suspect]
  3. INFLIXIMAB [Suspect]
     Indication: RHEUMATOID ARTHRITIS
     Dosage: (174 MG) INTRAVENOUS (NOT OTHERWISE SPECIFIED)
     Route: 042
     Dates: start: 20030225, end: 20060207

REACTIONS (6)
  - BETA HAEMOLYTIC STREPTOCOCCAL INFECTION [None]
  - BRAIN ABSCESS [None]
  - CEREBRAL INFARCTION [None]
  - INTERVERTEBRAL DISCITIS [None]
  - PSOAS ABSCESS [None]
  - SEPSIS [None]
